FAERS Safety Report 11717769 (Version 1)
Quarter: 2015Q4

REPORT INFORMATION
  Report Type: Report from Study
  Country: CO (occurrence: CO)
  Receive Date: 20151110
  Receipt Date: 20151110
  Transmission Date: 20160304
  Serious: Yes (Hospitalization)
  Sender: FDA-Public Use
  Company Number: CO-ROCHE-1658022

PATIENT
  Age: 48 Year
  Sex: Male

DRUGS (1)
  1. MYCOPHENOLATE MOFETIL. [Suspect]
     Active Substance: MYCOPHENOLATE MOFETIL
     Indication: RENAL TRANSPLANT
     Route: 048
     Dates: start: 20150806

REACTIONS (2)
  - Transplant rejection [Recovered/Resolved]
  - Hypercreatinaemia [Recovered/Resolved]

NARRATIVE: CASE EVENT DATE: 201510
